FAERS Safety Report 7688857-2 (Version None)
Quarter: 2011Q3

REPORT INFORMATION
  Report Type: 
  Country: None (occurrence: None)
  Receive Date: 20110817
  Receipt Date: 20110808
  Transmission Date: 20111222
  Serious: Yes (Other)
  Sender: FDA-Public Use
  Company Number: PHFR2011GB02583

PATIENT
  Sex: Female

DRUGS (4)
  1. CLOZAPINE [Suspect]
     Indication: SCHIZOPHRENIA
     Dates: start: 20010701
  2. CLOZAPINE [Suspect]
     Dosage: 400 MG,
     Route: 048
     Dates: start: 20070504
  3. CLOZAPINE [Suspect]
     Dosage: 375 MG,
     Route: 048
     Dates: start: 20110419
  4. VENLAFAXINE [Concomitant]
     Dosage: 150 MG DAILY
     Route: 048
     Dates: start: 20070504

REACTIONS (3)
  - FALL [None]
  - MYOCLONUS [None]
  - ANTIPSYCHOTIC DRUG LEVEL ABOVE THERAPEUTIC [None]
